FAERS Safety Report 17025873 (Version 1)
Quarter: 2019Q4

REPORT INFORMATION
  Report Type: Spontaneous
  Country: US (occurrence: US)
  Receive Date: 20191009
  Receipt Date: 20191009
  Transmission Date: 20200122
  Serious: No
  Sender: FDA-Public Use
  Company Number: None

PATIENT
  Age: 79 Year
  Sex: Male

DRUGS (4)
  1. IMATINIB 400MG TAB (X30) [Suspect]
     Active Substance: IMATINIB
     Route: 048
     Dates: start: 20190430, end: 20190430
  2. ELIQUIS [Concomitant]
     Active Substance: APIXABAN
  3. AMIODARONE [Concomitant]
     Active Substance: AMIODARONE
  4. SPRYCEL [Suspect]
     Active Substance: DASATINIB

REACTIONS (2)
  - Dyspnoea [None]
  - Cardiac failure congestive [None]

NARRATIVE: CASE EVENT DATE: 20191009
